FAERS Safety Report 19114463 (Version 1)
Quarter: 2021Q2

REPORT INFORMATION
  Report Type: Spontaneous
  Country: US (occurrence: US)
  Receive Date: 20210409
  Receipt Date: 20210409
  Transmission Date: 20210717
  Serious: Yes (Hospitalization, Other)
  Sender: FDA-Public Use
  Company Number: US-VELOXIS PHARMACEUTICALS-2021VELUS-000236

PATIENT
  Age: 33 Year
  Sex: Female

DRUGS (2)
  1. ENVARSUS XR [Suspect]
     Active Substance: TACROLIMUS
     Indication: IMMUNOSUPPRESSANT DRUG THERAPY
  2. ENVARSUS XR [Suspect]
     Active Substance: TACROLIMUS
     Indication: PROPHYLAXIS AGAINST TRANSPLANT REJECTION
     Dosage: 0.5 MILLIGRAM, QD
     Route: 065

REACTIONS (6)
  - Cellulitis [Recovering/Resolving]
  - Off label use [Unknown]
  - Dyschromatopsia [Not Recovered/Not Resolved]
  - Acute kidney injury [Recovering/Resolving]
  - Optic neuropathy [Not Recovered/Not Resolved]
  - Toxicity to various agents [Not Recovered/Not Resolved]
